FAERS Safety Report 19150933 (Version 1)
Quarter: 2021Q2

REPORT INFORMATION
  Report Type: Spontaneous
  Country: US (occurrence: US)
  Receive Date: 20210419
  Receipt Date: 20210419
  Transmission Date: 20210717
  Serious: No
  Sender: FDA-Public Use
  Company Number: US-AMGEN-USASP2020214086

PATIENT
  Sex: Female

DRUGS (10)
  1. SPIRONOLACTON [Concomitant]
     Active Substance: SPIRONOLACTONE
     Dosage: 50 MILLIGRAM
  2. ESTRADIOL. [Concomitant]
     Active Substance: ESTRADIOL
     Dosage: 2 MILLIGRAM
  3. RABEPRAZOLE [Concomitant]
     Active Substance: RABEPRAZOLE
     Dosage: 20 MILLIGRAM
  4. LINZESS [Concomitant]
     Active Substance: LINACLOTIDE
     Dosage: 72 MICROGRAM
  5. ENBREL [Suspect]
     Active Substance: ETANERCEPT
     Indication: OSTEOARTHRITIS
     Dosage: 50 MILLIGRAM, QWK
     Route: 058
  6. HYDROCODONE [Concomitant]
     Active Substance: HYDROCODONE
     Dosage: UNK (10? 325 MG)
  7. MONTELUKAST [Concomitant]
     Active Substance: MONTELUKAST SODIUM
     Dosage: 10 MILLIGRAM
  8. BACLOFEN. [Concomitant]
     Active Substance: BACLOFEN
     Dosage: 10 MILLIGRAM
  9. BUSPIRONE HCL [Concomitant]
     Active Substance: BUSPIRONE HYDROCHLORIDE
     Dosage: 10 MILLIGRAM
  10. LOSARTAN POTASSIUM. [Concomitant]
     Active Substance: LOSARTAN POTASSIUM
     Dosage: 50 MILLIGRAM

REACTIONS (2)
  - Product use in unapproved indication [Unknown]
  - Hypersensitivity [Unknown]
